FAERS Safety Report 15307318 (Version 2)
Quarter: 2018Q3

REPORT INFORMATION
  Report Type: Spontaneous
  Country: US (occurrence: US)
  Receive Date: 20180822
  Receipt Date: 20180924
  Transmission Date: 20181010
  Serious: Yes (Hospitalization, Other)
  Sender: FDA-Public Use
  Company Number: US-GILEAD-2018-0356555

PATIENT
  Age: 51 Year
  Sex: Female
  Weight: 121 kg

DRUGS (9)
  1. KEPPRA [Concomitant]
     Active Substance: LEVETIRACETAM
     Dosage: 750 MG, UNK
     Route: 048
     Dates: start: 20180730, end: 20180804
  2. YESCARTA [Suspect]
     Active Substance: AXICABTAGENE CILOLEUCEL
     Indication: DIFFUSE LARGE B-CELL LYMPHOMA REFRACTORY
     Dosage: SINGLE DOSE 2 X 10^6
     Route: 042
     Dates: start: 20180731, end: 20180731
  3. OMEPRAZOLE. [Concomitant]
     Active Substance: OMEPRAZOLE
     Dosage: UNK
     Dates: start: 20180731, end: 20180804
  4. KEPPRA [Concomitant]
     Active Substance: LEVETIRACETAM
     Dosage: 750 MG, UNK
     Route: 042
     Dates: start: 20180804, end: 20180810
  5. FEXOFENADINE [Concomitant]
     Active Substance: FEXOFENADINE\FEXOFENADINE HYDROCHLORIDE
     Dosage: UNK
     Dates: start: 20180731, end: 20180804
  6. FLUDARABINE [Concomitant]
     Active Substance: FLUDARABINE PHOSPHATE
     Indication: BONE MARROW CONDITIONING REGIMEN
     Dosage: UNK
     Dates: end: 20180728
  7. CYCLOPHOSPHAMIDE. [Concomitant]
     Active Substance: CYCLOPHOSPHAMIDE
     Indication: BONE MARROW CONDITIONING REGIMEN
     Dosage: UNK
     Dates: end: 20180728
  8. KEPPRA [Concomitant]
     Active Substance: LEVETIRACETAM
     Dosage: 500 MG, UNK
     Route: 042
     Dates: start: 20180804
  9. CHLORHEXIDINE                      /00133002/ [Concomitant]
     Active Substance: CHLORHEXIDINE GLUCONATE
     Dosage: UNK
     Dates: start: 20180730, end: 20180815

REACTIONS (16)
  - Neurotoxicity [Recovered/Resolved]
  - Atrial fibrillation [Recovered/Resolved]
  - International normalised ratio increased [Recovering/Resolving]
  - Aphasia [Unknown]
  - Disorientation [Unknown]
  - Febrile neutropenia [Unknown]
  - Encephalopathy [Recovered/Resolved]
  - Electrocardiogram QT prolonged [Unknown]
  - Cytokine release syndrome [Recovered/Resolved]
  - Tachycardia [Unknown]
  - Fatigue [Unknown]
  - Pyrexia [Unknown]
  - Blood fibrinogen decreased [Not Recovered/Not Resolved]
  - Flushing [Unknown]
  - Chills [Unknown]
  - Hypoxia [Unknown]

NARRATIVE: CASE EVENT DATE: 201808
